FAERS Safety Report 13542816 (Version 1)
Quarter: 2017Q2

REPORT INFORMATION
  Report Type: Spontaneous
  Country: US (occurrence: US)
  Receive Date: 20170512
  Receipt Date: 20170512
  Transmission Date: 20170830
  Serious: No
  Sender: FDA-Public Use
  Company Number: US-AMGEN-USASP2017071809

PATIENT
  Age: 67 Year
  Sex: Male

DRUGS (7)
  1. AMLODIPINE BESYLATE. [Concomitant]
     Active Substance: AMLODIPINE BESYLATE
  2. FISH OIL [Concomitant]
     Active Substance: FISH OIL
  3. GABAPENTIN. [Concomitant]
     Active Substance: GABAPENTIN
  4. ENBREL [Suspect]
     Active Substance: ETANERCEPT
     Indication: POLYARTHRITIS
     Dosage: 50 MG, QWK
     Route: 058
  5. ASPIRIN. [Concomitant]
     Active Substance: ASPIRIN
  6. ALEVE [Concomitant]
     Active Substance: NAPROXEN SODIUM
  7. ATORVASTATIN CALCIUM. [Concomitant]
     Active Substance: ATORVASTATIN CALCIUM

REACTIONS (1)
  - Off label use [Unknown]
